FAERS Safety Report 13534904 (Version 2)
Quarter: 2018Q1

REPORT INFORMATION
  Report Type: Report from Study
  Country: AU (occurrence: AU)
  Receive Date: 20170511
  Receipt Date: 20180122
  Transmission Date: 20180508
  Serious: Yes (Hospitalization)
  Sender: FDA-Public Use
  Company Number: AU-TEVA-766808ROM

PATIENT
  Age: 60 Year
  Sex: Male

DRUGS (8)
  1. AMITRIPTYLINE [Suspect]
     Active Substance: AMITRIPTYLINE
     Dosage: 275MG
     Route: 048
  2. AMLODIPINE [Suspect]
     Active Substance: AMLODIPINE BESYLATE
     Dosage: 55MG
     Route: 048
  3. DESVENLAFAXINE. [Suspect]
     Active Substance: DESVENLAFAXINE
     Dosage: 1650MG
     Route: 048
  4. OXYCODONE [Suspect]
     Active Substance: OXYCODONE
     Dosage: 220MG
     Route: 048
  5. PERINDOPRIL [Suspect]
     Active Substance: PERINDOPRIL
     Dosage: 55MG
     Route: 048
  6. RABEPRAZOLE [Suspect]
     Active Substance: RABEPRAZOLE
     Dosage: 220MG
     Route: 048
  7. MELOXICAM. [Suspect]
     Active Substance: MELOXICAM
     Dosage: 165MG
     Route: 048
  8. ACETYLSALICYLIC ACID [Suspect]
     Active Substance: ASPIRIN
     Dosage: 1100MG
     Route: 048

REACTIONS (2)
  - Overdose [Unknown]
  - Coma scale abnormal [Unknown]
